FAERS Safety Report 12977319 (Version 3)
Quarter: 2020Q2

REPORT INFORMATION
  Report Type: Report from Study
  Country: KR (occurrence: KR)
  Receive Date: 20161128
  Receipt Date: 20200527
  Transmission Date: 20200713
  Serious: Yes (Hospitalization, Other)
  Sender: FDA-Public Use
  Company Number: KR-BRISTOL-MYERS SQUIBB COMPANY-BMS-2016-097701

PATIENT
  Age: 57 Year
  Sex: Female

DRUGS (2)
  1. ASUNAPREVIR [Suspect]
     Active Substance: ASUNAPREVIR
     Indication: HEPATITIS C
     Dosage: 100 MILLIGRAM, BID
     Route: 065
     Dates: start: 20160523, end: 20160608
  2. DACLATASVIR DIHYDROCHLORIDE [Suspect]
     Active Substance: DACLATASVIR DIHYDROCHLORIDE
     Indication: HEPATITIS C
     Dosage: 60 MILLIGRAM, QD
     Route: 065
     Dates: start: 20160523, end: 20160608

REACTIONS (6)
  - Pyrexia [Recovered/Resolved]
  - Headache [Recovered/Resolved]
  - Ascites [Unknown]
  - Dyspnoea [Recovered/Resolved]
  - Peritonitis bacterial [Recovered/Resolved]
  - Pleural effusion [Unknown]

NARRATIVE: CASE EVENT DATE: 20160602
